FAERS Safety Report 7305855-9 (Version None)
Quarter: 2011Q1

REPORT INFORMATION
  Report Type: 
  Country: None (occurrence: None)
  Receive Date: 20110222
  Receipt Date: 20110215
  Transmission Date: 20110831
  Serious: Yes (Other)
  Sender: FDA-Public Use
  Company Number: US-ROCHE-760630

PATIENT
  Sex: Male

DRUGS (1)
  1. PEGASYS [Suspect]
     Route: 065

REACTIONS (2)
  - PLATELET COUNT DECREASED [None]
  - HEPATIC NEOPLASM MALIGNANT [None]
